FAERS Safety Report 24178542 (Version 1)
Quarter: 2024Q3

REPORT INFORMATION
  Report Type: Spontaneous
  Country: US (occurrence: None)
  Receive Date: 20240805
  Receipt Date: 20240805
  Transmission Date: 20241017
  Serious: No
  Sender: Public
  Company Number: None

PATIENT

DRUGS (1)
  1. VASOPRESSIN [Suspect]
     Active Substance: VASOPRESSIN

REACTIONS (4)
  - Transcription medication error [None]
  - Product dispensing error [None]
  - Incorrect dose administered [None]
  - Inappropriate schedule of product administration [None]
